FAERS Safety Report 16311459 (Version 1)
Quarter: 2019Q2

REPORT INFORMATION
  Report Type: Report from Study
  Country: US (occurrence: US)
  Receive Date: 20190514
  Receipt Date: 20190514
  Transmission Date: 20190711
  Serious: Yes (Life-Threatening, Hospitalization, Other)
  Sender: FDA-Public Use
  Company Number: US-PFIZER INC-2019202778

PATIENT
  Age: 4 Year
  Sex: Male

DRUGS (4)
  1. VINCRISTINE SULFATE. [Suspect]
     Active Substance: VINCRISTINE SULFATE
     Dosage: UNK, CYCLIC (FOURTH VINCRISTINE DOSE)
  2. VINCRISTINE SULFATE. [Suspect]
     Active Substance: VINCRISTINE SULFATE
     Dosage: UNK, CYCLIC (VINCRISTINE WAS RESTARTED AND MAINTAINED AT ONE-TENTH-DOSE)
  3. VINCRISTINE SULFATE. [Suspect]
     Active Substance: VINCRISTINE SULFATE
     Indication: T-CELL TYPE ACUTE LEUKAEMIA
     Dosage: 1.5 MG/M2, WEEKLY (IV WEEKLY X 4, ACCORDING TO CCG-1961 PROTOCOL REGIMEN C)
     Route: 042
  4. VINCRISTINE SULFATE. [Suspect]
     Active Substance: VINCRISTINE SULFATE
     Dosage: UNK, CYCLIC (DELAYED INTENSIFICATION THERAPY)

REACTIONS (3)
  - Vocal cord paralysis [Not Recovered/Not Resolved]
  - Neurotoxicity [Unknown]
  - Vocal cord paresis [Not Recovered/Not Resolved]
